FAERS Safety Report 6126670-8 (Version None)
Quarter: 2009Q1

REPORT INFORMATION
  Report Type: 
  Country: None (occurrence: None)
  Receive Date: 20090320
  Receipt Date: 20090318
  Transmission Date: 20090719
  Serious: Yes (Death)
  Sender: FDA-Public Use
  Company Number: US-SANOFI-SYNTHELABO-F01200900273

PATIENT
  Age: 58 Year
  Sex: Female
  Weight: 120.45 kg

DRUGS (12)
  1. OSCAL [Concomitant]
  2. CYMBALTA [Concomitant]
  3. TOPROL-XL [Concomitant]
     Indication: HYPERTENSION
  4. CELEBREX [Concomitant]
  5. CRESTOR [Concomitant]
  6. RADIATION THERAPY [Suspect]
     Dosage: 4500 CGY FOR 5 DAYS A WEEK FOR 5 WEEKS
     Dates: start: 20090202, end: 20090306
  7. FLUOROURACIL [Suspect]
     Dosage: 180 MG/M2 DAYS 1-35 (CONTINUOUSLY INFUSED OVER 24 HOURS)
     Route: 042
     Dates: start: 20090202, end: 20090309
  8. OXALIPLATIN [Suspect]
     Indication: OESOPHAGEAL ADENOCARCINOMA
     Dosage: 573 MG TOTAL DOSE ADMINISTERED THIS COURSE
     Route: 042
     Dates: start: 20090202, end: 20090303
  9. CETUXIMAB [Suspect]
     Dosage: 3140 MG (TOTAL DOSE ADMINISTERED THIS COURSE);   400 MG/M2 FOR THE FIRST DOSE THEN 250 MG/M2
     Route: 042
     Dates: start: 20090303, end: 20090303
  10. NEXIUM [Concomitant]
  11. FISH OIL [Concomitant]
  12. ALTACE [Concomitant]

REACTIONS (2)
  - CARDIAC ARREST [None]
  - PULMONARY EMBOLISM [None]
